FAERS Safety Report 13359229 (Version 3)
Quarter: 2017Q2

REPORT INFORMATION
  Report Type: Spontaneous
  Country: TR (occurrence: TR)
  Receive Date: 20170322
  Receipt Date: 20170405
  Transmission Date: 20170830
  Serious: Yes (Hospitalization, Other)
  Sender: FDA-Public Use
  Company Number: TR-SA-2017SA043870

PATIENT
  Age: 22 Year
  Sex: Male

DRUGS (2)
  1. EPINEPHRINE HYDROCHLORIDE. [Suspect]
     Active Substance: EPINEPHRINE HYDROCHLORIDE
     Indication: LARYNGEAL OEDEMA
     Dosage: (0.5 ML,1:1000)
     Route: 030
  2. BENZYLPENICILLIN PROCAINE [Suspect]
     Active Substance: PENICILLIN G PROCAINE
     Indication: TONSILLITIS
     Route: 030

REACTIONS (15)
  - Pruritus [Unknown]
  - Electrocardiogram ST segment elevation [Recovered/Resolved]
  - Dyspnoea [Recovered/Resolved]
  - Acute myocardial infarction [Unknown]
  - Blood creatine phosphokinase MB increased [Unknown]
  - Dysphonia [Recovered/Resolved]
  - Erythema [Unknown]
  - Electrocardiogram T wave inversion [Not Recovered/Not Resolved]
  - Laryngeal oedema [Recovered/Resolved]
  - Myocardial ischaemia [Unknown]
  - Troponin I increased [Unknown]
  - Chest pain [Recovering/Resolving]
  - Blood pressure decreased [Recovering/Resolving]
  - Kounis syndrome [Recovering/Resolving]
  - Echocardiogram abnormal [Recovering/Resolving]
